FAERS Safety Report 6727180-7 (Version None)
Quarter: 2010Q2

REPORT INFORMATION
  Report Type: 
  Country: None (occurrence: None)
  Receive Date: 20100512
  Receipt Date: 20100114
  Transmission Date: 20101027
  Serious: No
  Sender: FDA-Public Use
  Company Number: 1000011283

PATIENT
  Age: 49 Year
  Sex: Female

DRUGS (8)
  1. SAVELLA [Suspect]
     Indication: FIBROMYALGIA
     Dosage: 12.5 MG (12.5 MG,1 IN 1 D),ORAL;25 MG (12.5 MG,2 IN 1 D),ORAL;50 MG (25 MG,2 IN 1 D),ORAL
     Route: 048
     Dates: start: 20090801, end: 20090801
  2. SAVELLA [Suspect]
     Indication: FIBROMYALGIA
     Dosage: 12.5 MG (12.5 MG,1 IN 1 D),ORAL;25 MG (12.5 MG,2 IN 1 D),ORAL;50 MG (25 MG,2 IN 1 D),ORAL
     Route: 048
     Dates: start: 20090801, end: 20090801
  3. SAVELLA [Suspect]
     Indication: FIBROMYALGIA
     Dosage: 12.5 MG (12.5 MG,1 IN 1 D),ORAL;25 MG (12.5 MG,2 IN 1 D),ORAL;50 MG (25 MG,2 IN 1 D),ORAL
     Route: 048
     Dates: start: 20090801, end: 20090801
  4. SAVELLA [Suspect]
     Indication: FIBROMYALGIA
     Dosage: 100 MG (50 MG,2 IN 1 D),ORAL
     Route: 048
     Dates: start: 20090801, end: 20090801
  5. SAVELLA [Suspect]
     Indication: FIBROMYALGIA
     Dosage: SEE IMAGE
     Route: 048
     Dates: start: 20091001, end: 20091001
  6. SAVELLA [Suspect]
     Indication: FIBROMYALGIA
     Dosage: SEE IMAGE
     Route: 048
     Dates: start: 20091001, end: 20091001
  7. SAVELLA [Suspect]
     Indication: FIBROMYALGIA
     Dosage: SEE IMAGE
     Route: 048
     Dates: start: 20091001, end: 20091001
  8. SAVELLA [Suspect]
     Indication: FIBROMYALGIA
     Dosage: SEE IMAGE
     Route: 048
     Dates: start: 20091001

REACTIONS (6)
  - CONSTIPATION [None]
  - FLATULENCE [None]
  - FLUSHING [None]
  - INCREASED APPETITE [None]
  - NAUSEA [None]
  - PERIPHERAL COLDNESS [None]
